FAERS Safety Report 5378571-0 (Version None)
Quarter: 2007Q3

REPORT INFORMATION
  Report Type: 
  Country: None (occurrence: None)
  Receive Date: 20070705
  Receipt Date: 20070626
  Transmission Date: 20080115
  Serious: Yes (Other)
  Sender: FDA-Public Use
  Company Number: IT-JNJFOC-20070606059

PATIENT
  Age: 63 Year
  Sex: Male

DRUGS (1)
  1. LEVOFLOXACIN [Suspect]
     Indication: VIRAL INFECTION
     Route: 048

REACTIONS (3)
  - ABASIA [None]
  - ARTHRALGIA [None]
  - ERYTHEMA [None]
